FAERS Safety Report 9747682 (Version 1)
Quarter: 2013Q4

REPORT INFORMATION
  Report Type: Spontaneous
  Country: US (occurrence: None)
  Receive Date: 20131211
  Receipt Date: 20131211
  Transmission Date: 20140711
  Serious: No
  Sender: FDA-Public Use
  Company Number: None

PATIENT
  Age: 76 Year
  Sex: Female
  Weight: 78.02 kg

DRUGS (1)
  1. CLINDAMYCIN [Suspect]
     Indication: ENDODONTIC PROCEDURE
     Dosage: 1 EVERY 6 HRS. EVERY 6 HRS. TAKEN BY MOUTH
     Route: 048
     Dates: start: 20130926, end: 20131006

REACTIONS (4)
  - Epistaxis [None]
  - Hyperhidrosis [None]
  - Dizziness [None]
  - Urinary incontinence [None]
